FAERS Safety Report 23227947 (Version 4)
Quarter: 2024Q2

REPORT INFORMATION
  Report Type: Report from Study
  Country: US (occurrence: US)
  Receive Date: 20231125
  Receipt Date: 20240406
  Transmission Date: 20240716
  Serious: Yes (Hospitalization, Other)
  Sender: FDA-Public Use
  Company Number: US-TEVA-2022-US-2826688

PATIENT
  Age: 61 Year
  Sex: Female
  Weight: 91 kg

DRUGS (12)
  1. TREPROSTINIL [Suspect]
     Active Substance: TREPROSTINIL
     Indication: Pulmonary arterial hypertension
     Dosage: DOSAGE TEXT: 12 NG/KG/MIN, 1MG/ML
     Route: 042
     Dates: start: 20221028
  2. TREPROSTINIL [Suspect]
     Active Substance: TREPROSTINIL
     Indication: Pulmonary arterial hypertension
     Dosage: DOSAGE TEXT: 27 NG/KG/MIN,CONTINUOUS
     Route: 042
     Dates: start: 202210
  3. TREPROSTINIL [Suspect]
     Active Substance: TREPROSTINIL
     Indication: Pulmonary arterial hypertension
     Dosage: DOSAGE TEXT: 14 NG/KG/MIN, 1MG/ML, MONTHLY
     Route: 042
     Dates: start: 202210
  4. TREPROSTINIL [Suspect]
     Active Substance: TREPROSTINIL
     Indication: Pulmonary arterial hypertension
     Dosage: DOSAGE TEXT: 31 NG/KG/MIN
     Route: 042
     Dates: start: 202210
  5. TREPROSTINIL [Suspect]
     Active Substance: TREPROSTINIL
     Indication: Pulmonary arterial hypertension
     Dosage: DOSAGE TEXT: 33 NG/KG/MIN
     Route: 042
     Dates: start: 20221031
  6. TREPROSTINIL [Suspect]
     Active Substance: TREPROSTINIL
     Indication: Pulmonary arterial hypertension
     Dosage: DOSAGE TEXT: 33 NG/KG/MIN
     Route: 042
     Dates: start: 202210
  7. TREPROSTINIL [Suspect]
     Active Substance: TREPROSTINIL
     Indication: Pulmonary arterial hypertension
     Dosage: DOSAGE TEXT: 27 NG/KG/MIN
     Route: 042
     Dates: start: 202211
  8. TREPROSTINIL [Suspect]
     Active Substance: TREPROSTINIL
     Indication: Pulmonary arterial hypertension
     Dosage: DOSAGE TEXT: 29 NG/KG/MIN
     Route: 042
     Dates: start: 202210
  9. REMODULIN [Suspect]
     Active Substance: TREPROSTINIL
     Indication: Product used for unknown indication
     Route: 065
  10. FLOLAN STERILE DILUENT [Concomitant]
     Indication: Product used for unknown indication
     Dosage: DOSAGE TEXT: 50 ML
     Route: 065
  11. OPSUMIT [Concomitant]
     Active Substance: MACITENTAN
     Indication: Product used for unknown indication
     Route: 065
  12. SILDENAFIL CITRATE [Concomitant]
     Active Substance: SILDENAFIL CITRATE
     Indication: Product used for unknown indication
     Route: 065

REACTIONS (9)
  - Vascular device infection [Unknown]
  - Hospitalisation [Unknown]
  - Pain [Unknown]
  - Pain in extremity [Unknown]
  - Bone pain [Unknown]
  - Dizziness [Unknown]
  - Infusion site discolouration [Unknown]
  - Infusion site discharge [Unknown]
  - Infusion site pain [Unknown]

NARRATIVE: CASE EVENT DATE: 20230101
